FAERS Safety Report 17967427 (Version 1)
Quarter: 2020Q3

REPORT INFORMATION
  Report Type: Spontaneous
  Country: BE (occurrence: BE)
  Receive Date: 20200701
  Receipt Date: 20200701
  Transmission Date: 20201103
  Serious: Yes (Hospitalization, Disabling)
  Sender: FDA-Public Use
  Company Number: BE-TEVA-2020-BE-1792854

PATIENT
  Age: 33 Year
  Sex: Male
  Weight: 100 kg

DRUGS (2)
  1. LEVOFLOXACINE TEVA 250 MG FILMOMHULDE TABLETTEN [Suspect]
     Active Substance: LEVOFLOXACIN
     Indication: CYSTITIS BACTERIAL
     Dosage: 2 DF
     Route: 048
     Dates: start: 20200506, end: 20200506
  2. XANAX [Concomitant]
     Active Substance: ALPRAZOLAM
     Dosage: HALF TO 1 DOSAGE FORM PER DAY, TAKEN FOR SEVERAL MONTHS ALREADY
     Route: 048

REACTIONS (21)
  - Muscular weakness [Not Recovered/Not Resolved]
  - Hyperhidrosis [Not Recovered/Not Resolved]
  - Genital hypoaesthesia [Not Recovered/Not Resolved]
  - Vision blurred [Not Recovered/Not Resolved]
  - Anxiety [Not Recovered/Not Resolved]
  - Pyrexia [Not Recovered/Not Resolved]
  - Speech disorder [Not Recovered/Not Resolved]
  - Fatigue [Not Recovered/Not Resolved]
  - Dizziness [Not Recovered/Not Resolved]
  - Vomiting [Not Recovered/Not Resolved]
  - Asthenia [Not Recovered/Not Resolved]
  - Auditory disorder [Not Recovered/Not Resolved]
  - Taste disorder [Not Recovered/Not Resolved]
  - Photosensitivity reaction [Not Recovered/Not Resolved]
  - Paraesthesia [Not Recovered/Not Resolved]
  - Tremor [Not Recovered/Not Resolved]
  - Hypoaesthesia [Not Recovered/Not Resolved]
  - Arthralgia [Not Recovered/Not Resolved]
  - Myalgia [Not Recovered/Not Resolved]
  - Panic disorder [Not Recovered/Not Resolved]
  - Listless [Not Recovered/Not Resolved]

NARRATIVE: CASE EVENT DATE: 20200506
